FAERS Safety Report 6334756-8 (Version None)
Quarter: 2009Q3

REPORT INFORMATION
  Report Type: 
  Country: None (occurrence: None)
  Receive Date: 20090831
  Receipt Date: 20090824
  Transmission Date: 20100115
  Serious: Yes (Hospitalization, Other)
  Sender: FDA-Public Use
  Company Number: PHHY2009BE22868

PATIENT
  Sex: Male

DRUGS (2)
  1. ZOMETA [Suspect]
  2. CORTICOSTEROIDS [Concomitant]

REACTIONS (4)
  - BONE LESION [None]
  - HIP ARTHROPLASTY [None]
  - IMPAIRED HEALING [None]
  - OSTEONECROSIS [None]
